FAERS Safety Report 9972725 (Version 1)
Quarter: 2014Q1

REPORT INFORMATION
  Report Type: Spontaneous
  Country: US (occurrence: US)
  Receive Date: 20140306
  Receipt Date: 20140306
  Transmission Date: 20141002
  Serious: No
  Sender: FDA-Public Use
  Company Number: US-PFIZER INC-2014058832

PATIENT
  Sex: Female

DRUGS (7)
  1. CLEOCIN [Suspect]
     Dosage: UNK
  2. NYSTATIN [Suspect]
     Dosage: UNK
  3. INDERAL [Suspect]
     Dosage: UNK
  4. CEFTIN [Suspect]
     Dosage: UNK
  5. ISOVUE-M [Suspect]
     Dosage: UNK
  6. ALDOMET [Suspect]
     Dosage: UNK
  7. PHENOBARBITAL [Suspect]
     Dosage: UNK

REACTIONS (1)
  - Drug hypersensitivity [Unknown]
